FAERS Safety Report 5596283-5 (Version None)
Quarter: 2007Q4

REPORT INFORMATION
  Report Type: 
  Country: None (occurrence: None)
  Receive Date: 20071218
  Receipt Date: 20061213
  Transmission Date: 20080405
  Serious: Yes (Hospitalization, Other)
  Sender: FDA-Public Use
  Company Number: 2006029852

PATIENT
  Age: 56 Year
  Sex: Male
  Weight: 69.4 kg

DRUGS (8)
  1. BEXTRA [Suspect]
     Indication: MUSCULOSKELETAL PAIN
     Dosage: 10 MG (10 MG,1 IN 1 D)
     Dates: start: 20030701
  2. ALEVE [Concomitant]
  3. CELEBREX [Concomitant]
  4. ACETAMINOPHEN [Concomitant]
  5. ULTRAM [Concomitant]
  6. VIOXX [Concomitant]
  7. VOLTAREN [Concomitant]
  8. OXYCONTIN [Concomitant]

REACTIONS (3)
  - ANXIETY [None]
  - MEMORY IMPAIRMENT [None]
  - MYOCARDIAL INFARCTION [None]
